FAERS Safety Report 9586067 (Version 1)
Quarter: 2013Q4

REPORT INFORMATION
  Report Type: Spontaneous
  Country: FR (occurrence: FR)
  Receive Date: 20131003
  Receipt Date: 20131003
  Transmission Date: 20140711
  Serious: Yes (Death)
  Sender: FDA-Public Use
  Company Number: FR-JNJFOC-20130914707

PATIENT
  Age: 82 Year
  Sex: Female

DRUGS (4)
  1. RISPERDAL ORO [Suspect]
     Indication: DELIRIUM
     Route: 048
     Dates: start: 20090119
  2. RISPERDAL ORO [Suspect]
     Indication: DELIRIUM
     Route: 048
     Dates: end: 20090122
  3. RISPERDAL ORO [Suspect]
     Indication: DELIRIUM
     Route: 048
     Dates: start: 20090102
  4. CEFTRIAXONE PANPHARMA [Suspect]
     Indication: PRODUCT USED FOR UNKNOWN INDICATION
     Route: 065
     Dates: start: 20090112, end: 20090122

REACTIONS (2)
  - Lung disorder [Unknown]
  - Sudden death [Fatal]
